FAERS Safety Report 5870394-9 (Version None)
Quarter: 2008Q3

REPORT INFORMATION
  Report Type: 
  Country: None (occurrence: None)
  Receive Date: 20080904
  Receipt Date: 20071219
  Transmission Date: 20090109
  Serious: Yes (Hospitalization)
  Sender: FDA-Public Use
  Company Number: US-BRISTOL-MYERS SQUIBB COMPANY-14002737

PATIENT
  Age: 73 Year
  Sex: Male
  Weight: 91 kg

DRUGS (12)
  1. DEFINITY [Suspect]
     Indication: CARDIAC STRESS TEST
     Route: 042
     Dates: start: 20071128
  2. DOBUTAMINE HCL [Suspect]
     Indication: CARDIAC STRESS TEST
     Route: 042
     Dates: start: 20071128
  3. ATROPINE [Suspect]
     Indication: CARDIAC STRESS TEST
     Route: 042
     Dates: start: 20071128
  4. COUMADIN [Concomitant]
  5. SIMVASTATIN [Concomitant]
  6. OMEPRAZOLE [Concomitant]
  7. INSULIN [Concomitant]
  8. FUROSEMIDE [Concomitant]
  9. FOSINOPRIL SODIUM [Concomitant]
  10. DIGOXIN [Concomitant]
  11. CLONAZEPAM [Concomitant]
  12. CITALOPRAM HYDROBROMIDE [Concomitant]

REACTIONS (3)
  - BLOOD PRESSURE DECREASED [None]
  - CHEST PAIN [None]
  - NODAL RHYTHM [None]
